FAERS Safety Report 18112842 (Version 1)
Quarter: 2020Q3

REPORT INFORMATION
  Report Type: Spontaneous
  Country: DE (occurrence: DE)
  Receive Date: 20200805
  Receipt Date: 20200805
  Transmission Date: 20201103
  Serious: Yes (Hospitalization)
  Sender: FDA-Public Use
  Company Number: DE-PFIZER INC-2020292349

PATIENT
  Age: 21 Year
  Sex: Male
  Weight: 56 kg

DRUGS (3)
  1. METHYLENEDIOXYMETHAMPHETAMINE [Suspect]
     Active Substance: MIDOMAFETAMINE
     Dosage: UNK
     Route: 065
  2. PREGABALIN. [Suspect]
     Active Substance: PREGABALIN
     Dosage: UNK
     Route: 065
  3. CLONAZEPAM. [Suspect]
     Active Substance: CLONAZEPAM
     Dosage: UNK
     Route: 065

REACTIONS (14)
  - Nervous system disorder [Recovered/Resolved]
  - Drug abuse [Unknown]
  - Tachycardia [Recovered/Resolved]
  - Mydriasis [Recovered/Resolved]
  - Hyperpyrexia [Recovered/Resolved]
  - Dehydration [Recovered/Resolved]
  - Hyperthermia [Unknown]
  - Hypoglycaemia [Recovered/Resolved]
  - Coagulopathy [Unknown]
  - Rhabdomyolysis [Unknown]
  - Inflammation [Unknown]
  - Renal failure [Recovered/Resolved]
  - Generalised tonic-clonic seizure [Recovered/Resolved]
  - Hepatic failure [Recovered/Resolved]
